FAERS Safety Report 9800466 (Version 2)
Quarter: 2014Q1

REPORT INFORMATION
  Report Type: Spontaneous
  Country: CA (occurrence: CA)
  Receive Date: 20140107
  Receipt Date: 20140315
  Transmission Date: 20141002
  Serious: Yes (Hospitalization)
  Sender: FDA-Public Use
  Company Number: CA-ROCHE-1330001

PATIENT
  Sex: Female

DRUGS (3)
  1. XOLAIR [Suspect]
     Indication: ASTHMA
     Route: 058
     Dates: start: 20110428
  2. ADVAIR [Concomitant]
  3. SPIRIVA [Concomitant]

REACTIONS (2)
  - Road traffic accident [Unknown]
  - General physical health deterioration [Unknown]
